FAERS Safety Report 17757627 (Version 4)
Quarter: 2020Q2

REPORT INFORMATION
  Report Type: Report from Study
  Country: None (occurrence: TR)
  Receive Date: 20200507
  Receipt Date: 20200602
  Transmission Date: 20200714
  Serious: Yes (Other)
  Sender: FDA-Public Use
  Company Number: TR-ABBVIE-20K-161-3393277-00

PATIENT
  Age: 71 Year
  Sex: Male
  Weight: 80 kg

DRUGS (3)
  1. MADOPAR HBS [Concomitant]
     Active Substance: BENSERAZIDE HYDROCHLORIDE\LEVODOPA
     Indication: PARKINSON^S DISEASE
     Route: 048
     Dates: start: 2017
  2. PK-MERZ [Concomitant]
     Active Substance: AMANTADINE
     Indication: PARKINSON^S DISEASE
     Route: 048
     Dates: start: 2017
  3. DUODOPA [Suspect]
     Active Substance: CARBIDOPA\LEVODOPA
     Indication: PARKINSON^S DISEASE
     Dosage: MORNING DOSE (ML): 4.00 CONTINUOUS DOSE (ML): 2.90 EXTRA DOSE (ML): 1.00
     Route: 050
     Dates: start: 20170710

REACTIONS (1)
  - Jejunal ulcer [Recovered/Resolved]

NARRATIVE: CASE EVENT DATE: 202005
